FAERS Safety Report 11857350 (Version 1)
Quarter: 2015Q4

REPORT INFORMATION
  Report Type: Spontaneous
  Country: US (occurrence: None)
  Receive Date: 20151221
  Receipt Date: 20151221
  Transmission Date: 20160305
  Serious: Yes (Disabling)
  Sender: FDA-Public Use
  Company Number: None

PATIENT
  Age: 43 Year
  Sex: Female
  Weight: 86.18 kg

DRUGS (4)
  1. TELEMISARTEN [Concomitant]
  2. SYNTHROID [Concomitant]
     Active Substance: LEVOTHYROXINE SODIUM
  3. VITAMINS/MINERALS [Concomitant]
  4. TOPROL XL [Suspect]
     Active Substance: METOPROLOL SUCCINATE
     Indication: HYPERTENSION
     Dosage: ONCE DAILY
     Dates: start: 19890101, end: 20131231

REACTIONS (6)
  - Disorientation [None]
  - Affect lability [None]
  - Depressed level of consciousness [None]
  - Amnesia [None]
  - Depression [None]
  - Catatonia [None]

NARRATIVE: CASE EVENT DATE: 20151219
